FAERS Safety Report 6735561-0 (Version None)
Quarter: 2010Q2

REPORT INFORMATION
  Report Type: 
  Country: None (occurrence: None)
  Receive Date: 20100521
  Receipt Date: 20100514
  Transmission Date: 20101027
  Serious: Yes (Hospitalization)
  Sender: FDA-Public Use
  Company Number: US-JNJFOC-20100506243

PATIENT
  Age: 73 Year
  Sex: Female

DRUGS (2)
  1. ELMIRON [Suspect]
     Indication: BLADDER SPASM
     Route: 048
  2. UNKNOWN MEDICATION [Concomitant]
     Route: 065

REACTIONS (6)
  - BACK PAIN [None]
  - DEPRESSION [None]
  - HYPERTENSION [None]
  - INAPPROPRIATE SCHEDULE OF DRUG ADMINISTRATION [None]
  - SUICIDE ATTEMPT [None]
  - VERTIGO [None]
